FAERS Safety Report 6060283-1 (Version None)
Quarter: 2009Q1

REPORT INFORMATION
  Report Type: 
  Country: None (occurrence: None)
  Receive Date: 20090129
  Receipt Date: 20090122
  Transmission Date: 20090719
  Serious: No
  Sender: FDA-Public Use
  Company Number: MSTR-NO-0810S-0090

PATIENT
  Age: 62 Year
  Sex: Male
  Weight: 53.4 kg

DRUGS (2)
  1. METASTRON [Suspect]
     Indication: METASTATIC PAIN
     Dosage: 3.5 ML, SINGLE DOSE, I.V.
     Route: 042
     Dates: start: 20080814, end: 20080814
  2. CARBOPLATIN [Concomitant]

REACTIONS (2)
  - DISEASE PROGRESSION [None]
  - NO ADVERSE EVENT [None]
